FAERS Safety Report 9985933 (Version 1)
Quarter: 2014Q1

REPORT INFORMATION
  Report Type: Report from Study
  Country: US (occurrence: US)
  Receive Date: 20140307
  Receipt Date: 20140307
  Transmission Date: 20141002
  Serious: No
  Sender: FDA-Public Use
  Company Number: US-ABBVIE-13P-163-1088788-00

PATIENT
  Age: 10 Year
  Sex: Male
  Weight: 44.49 kg

DRUGS (4)
  1. HUMIRA [Suspect]
     Indication: SPONDYLITIS
     Dates: start: 201205, end: 201303
  2. HUMIRA [Suspect]
     Indication: PRODUCT USED FOR UNKNOWN INDICATION
     Dates: start: 201303
  3. METHOTREXATE [Concomitant]
     Indication: SPONDYLITIS
  4. INDOCIN [Concomitant]
     Indication: SPONDYLITIS

REACTIONS (3)
  - Condition aggravated [Not Recovered/Not Resolved]
  - Pain [Not Recovered/Not Resolved]
  - Off label use [Not Recovered/Not Resolved]
